FAERS Safety Report 23718873 (Version 1)
Quarter: 2024Q2

REPORT INFORMATION
  Report Type: Spontaneous
  Country: FR (occurrence: FR)
  Receive Date: 20240408
  Receipt Date: 20240408
  Transmission Date: 20240716
  Serious: Yes (Hospitalization, Other)
  Sender: FDA-Public Use
  Company Number: None

PATIENT
  Age: 98 Year
  Sex: Male

DRUGS (3)
  1. METRONIDAZOLE [Suspect]
     Active Substance: METRONIDAZOLE
     Indication: Urosepsis
     Dosage: 500 MG (MILLIGRAM) 8 H (HOURS)
     Route: 042
     Dates: start: 20230718, end: 20230720
  2. SPIRAMYCIN [Suspect]
     Active Substance: SPIRAMYCIN
     Indication: Urosepsis
     Dosage: 3 M(IU) (MEGA-INTERNATIONAL UNIT) EVERY 8 H (HOURS)
     Route: 048
     Dates: start: 20230720, end: 20230727
  3. CEFTRIAXONE [Suspect]
     Active Substance: CEFTRIAXONE\CEFTRIAXONE SODIUM
     Indication: Urosepsis
     Dosage: (CEFTRIAXONE BASE), 1 G (GRAM) AT AN UNSPECIFIED FREQUENCY
     Route: 048
     Dates: start: 20230715, end: 20230724

REACTIONS (1)
  - Clostridium difficile colitis [Unknown]

NARRATIVE: CASE EVENT DATE: 20230724
